FAERS Safety Report 8861763 (Version 1)
Quarter: 2012Q4

REPORT INFORMATION
  Report Type: Spontaneous
  Country: US (occurrence: None)
  Receive Date: 20121025
  Receipt Date: 20121025
  Transmission Date: 20130627
  Serious: No
  Sender: FDA-Public Use
  Company Number: None

PATIENT
  Age: 89 Year
  Sex: Male
  Weight: 79.1 kg

DRUGS (2)
  1. WARFARIN [Suspect]
     Indication: ATRIAL FIBRILLATION
     Dosage: 7.5 MG EVERY DAY PO
     Route: 048
     Dates: start: 20120126, end: 20120821
  2. WARFARIN [Suspect]
     Indication: CVA
     Dosage: 7.5 MG EVERY DAY PO
     Route: 048
     Dates: start: 20120126, end: 20120821

REACTIONS (4)
  - Cerebral haemorrhage [None]
  - Nausea [None]
  - Vomiting [None]
  - Fall [None]
